FAERS Safety Report 14108363 (Version 2)
Quarter: 2017Q4

REPORT INFORMATION
  Report Type: Report from Study
  Country: ZA (occurrence: ZA)
  Receive Date: 20171019
  Receipt Date: 20171117
  Transmission Date: 20180321
  Serious: Yes (Hospitalization)
  Sender: FDA-Public Use
  Company Number: PHHY2017ZA153335

PATIENT
  Sex: Female

DRUGS (2)
  1. NEXMEZOLE [Suspect]
     Active Substance: ESOMEPRAZOLE
     Indication: ULCER
     Dosage: 20 MG, UNK
     Route: 048
  2. TAREG [Suspect]
     Active Substance: VALSARTAN
     Indication: HYPERTENSION
     Dosage: 80 MG, UNK
     Route: 048

REACTIONS (2)
  - Rheumatoid arthritis [Unknown]
  - Cartilage injury [Unknown]
